FAERS Safety Report 14418204 (Version 1)
Quarter: 2018Q1

REPORT INFORMATION
  Report Type: Other
  Country: US (occurrence: US)
  Receive Date: 20180122
  Receipt Date: 20180122
  Transmission Date: 20180509
  Serious: No
  Sender: FDA-Public Use
  Company Number: US-INTERCEPT-PMOCA2017001262

PATIENT

DRUGS (5)
  1. OCALIVA [Suspect]
     Active Substance: OBETICHOLIC ACID
     Indication: PRIMARY BILIARY CHOLANGITIS
     Dosage: 5 MG, QD
     Route: 065
     Dates: start: 20170116
  2. OCALIVA [Suspect]
     Active Substance: OBETICHOLIC ACID
     Dosage: 10 MG, QD
     Dates: start: 20170719
  3. OCALIVA [Suspect]
     Active Substance: OBETICHOLIC ACID
     Dosage: 5 UNK, UNK
  4. OCALIVA [Suspect]
     Active Substance: OBETICHOLIC ACID
     Dosage: 10 MG, ONCE A WEEK
  5. ACTIGALL [Concomitant]
     Active Substance: URSODIOL
     Dosage: 300 MG, 4 TIMES DAILY

REACTIONS (3)
  - Pruritus [Unknown]
  - Drug ineffective [Unknown]
  - Insomnia [Unknown]
